FAERS Safety Report 22393404 (Version 1)
Quarter: 2023Q2

REPORT INFORMATION
  Report Type: Spontaneous
  Country: US (occurrence: None)
  Receive Date: 20230531
  Receipt Date: 20230531
  Transmission Date: 20230722
  Serious: Yes (Life-Threatening, Hospitalization, Other)
  Sender: FDA-Public Use
  Company Number: None

PATIENT
  Age: 48 Year
  Sex: Female
  Weight: 94.5 kg

DRUGS (7)
  1. DULOXETINE [Suspect]
     Active Substance: DULOXETINE
     Indication: Fibromyalgia
     Dosage: OTHER QUANTITY : 30 CAPSULE(S);?FREQUENCY : AT BEDTIME;?
     Route: 048
  2. TOPIRAMATE [Concomitant]
  3. NORCO [Concomitant]
  4. AMBIEN [Concomitant]
     Active Substance: ZOLPIDEM TARTRATE
  5. FISH OIL [Concomitant]
  6. turmeric [Concomitant]
  7. MAGNESIUM [Concomitant]
     Active Substance: MAGNESIUM

REACTIONS (10)
  - Drug ineffective [None]
  - Withdrawal syndrome [None]
  - Suicidal ideation [None]
  - Electric shock sensation [None]
  - Head discomfort [None]
  - Tinnitus [None]
  - Ear pain [None]
  - Paraesthesia [None]
  - Nonspecific reaction [None]
  - Nervous system disorder [None]

NARRATIVE: CASE EVENT DATE: 20160301
